FAERS Safety Report 14017201 (Version 3)
Quarter: 2017Q4

REPORT INFORMATION
  Report Type: Spontaneous
  Country: AR (occurrence: AR)
  Receive Date: 20170927
  Receipt Date: 20171109
  Transmission Date: 20180321
  Serious: Yes (Other)
  Sender: FDA-Public Use
  Company Number: PHHY2017AR140418

PATIENT
  Age: 78 Year
  Sex: Female

DRUGS (3)
  1. DIOVAN [Suspect]
     Active Substance: VALSARTAN
     Indication: BLOOD PRESSURE ABNORMAL
     Dosage: 1 DF (160 MG), QD
     Route: 065
     Dates: end: 20170907
  2. DIOVAN [Suspect]
     Active Substance: VALSARTAN
     Dosage: 1 DF (80 MG), QD
     Route: 065
     Dates: start: 20170907
  3. ATENOLOL. [Concomitant]
     Active Substance: ATENOLOL
     Indication: PRODUCT USED FOR UNKNOWN INDICATION
     Dosage: 25 MG, QD
     Route: 065

REACTIONS (9)
  - Blindness unilateral [Not Recovered/Not Resolved]
  - Food allergy [Unknown]
  - Stress [Unknown]
  - Retinal haemorrhage [Not Recovered/Not Resolved]
  - Intraocular pressure increased [Unknown]
  - Flushing [Unknown]
  - Eye swelling [Unknown]
  - Eyelid oedema [Unknown]
  - Erythema [Unknown]
